FAERS Safety Report 8632991 (Version 9)
Quarter: 2014Q3

REPORT INFORMATION
  Report Type: Spontaneous
  Country: US (occurrence: US)
  Receive Date: 20120625
  Receipt Date: 20140909
  Transmission Date: 20150326
  Serious: Yes (Hospitalization)
  Sender: FDA-Public Use
  Company Number: US-GLAXOSMITHKLINE-A0982032A

PATIENT
  Age: 74 Year
  Sex: Female

DRUGS (6)
  1. TRACLEER [Concomitant]
     Active Substance: BOSENTAN\BOSENTAN MONOHYDRATE
  2. VELETRI [Concomitant]
     Active Substance: EPOPROSTENOL
  3. FLOLAN [Suspect]
     Active Substance: EPOPROSTENOL SODIUM
     Indication: COR PULMONALE CHRONIC
     Dosage: 17.5NGKM CONTINUOUS
     Route: 042
     Dates: start: 20071231
  4. TORSEMIDE. [Suspect]
     Active Substance: TORSEMIDE
     Indication: PRODUCT USED FOR UNKNOWN INDICATION
  5. ADCIRCA [Concomitant]
     Active Substance: TADALAFIL
  6. COUMADIN [Concomitant]
     Active Substance: WARFARIN SODIUM

REACTIONS (13)
  - Bronchitis [Recovered/Resolved]
  - Device breakage [Unknown]
  - Dyspnoea [Unknown]
  - Device malfunction [Unknown]
  - Renal disorder [Recovering/Resolving]
  - Pain [Unknown]
  - Investigation [Unknown]
  - Lung disorder [Unknown]
  - Fluid retention [Unknown]
  - Catheter site haemorrhage [Unknown]
  - Dyspnoea exertional [Unknown]
  - Back pain [Unknown]
  - Central venous catheterisation [Unknown]
